FAERS Safety Report 9382993 (Version 1)
Quarter: 2013Q3

REPORT INFORMATION
  Report Type: Spontaneous
  Country: GB (occurrence: GB)
  Receive Date: 20130703
  Receipt Date: 20130703
  Transmission Date: 20140515
  Serious: Yes (Other)
  Sender: FDA-Public Use
  Company Number: GB-B.I. PHARMACEUTICALS,INC./RIDGEFIELD-2013-UK-01338UK

PATIENT
  Age: 38 Year
  Sex: Male
  Weight: 76.2 kg

DRUGS (6)
  1. PRADAXA [Suspect]
     Dates: start: 2013
  2. ASPIRIN [Concomitant]
     Dates: start: 20130307
  3. BISOPROLOL [Concomitant]
     Dates: start: 20130307
  4. GLYCERYL TRINITRATE [Concomitant]
     Dates: start: 20130307
  5. RAMIPRIL [Concomitant]
     Dates: start: 20130307
  6. SIMVASTATIN [Concomitant]
     Dates: start: 20130307

REACTIONS (1)
  - Skin hypopigmentation [Not Recovered/Not Resolved]
